FAERS Safety Report 16281131 (Version 1)
Quarter: 2019Q2

REPORT INFORMATION
  Report Type: Spontaneous
  Country: US (occurrence: US)
  Receive Date: 20190507
  Receipt Date: 20190507
  Transmission Date: 20190711
  Serious: Yes (Other)
  Sender: FDA-Public Use
  Company Number: PHHY2019US103220

PATIENT
  Age: 14 Year
  Sex: Male

DRUGS (8)
  1. METHOTREXATE. [Suspect]
     Active Substance: METHOTREXATE
     Indication: MEDULLOBLASTOMA
     Route: 065
  2. THIOTEPA. [Suspect]
     Active Substance: THIOTEPA
     Indication: MEDULLOBLASTOMA
     Route: 065
  3. CARBOPLATIN. [Suspect]
     Active Substance: CARBOPLATIN
     Indication: MEDULLOBLASTOMA
     Route: 065
  4. VINCRISTINE [Suspect]
     Active Substance: VINCRISTINE
     Indication: MEDULLOBLASTOMA
     Route: 065
  5. ETOPOSIDE. [Suspect]
     Active Substance: ETOPOSIDE
     Indication: MEDULLOBLASTOMA
     Route: 065
  6. CYCLOPHOSPHAMIDE. [Suspect]
     Active Substance: CYCLOPHOSPHAMIDE
     Indication: MEDULLOBLASTOMA
     Route: 065
  7. CISPLATIN. [Suspect]
     Active Substance: CISPLATIN
     Indication: MEDULLOBLASTOMA
     Route: 065
  8. TANDEM [Suspect]
     Active Substance: FERROUS ASPARTO GLYCINATE\FERROUS FUMARATE
     Indication: MEDULLOBLASTOMA
     Dosage: 3 DF, CYCLIC
     Route: 065

REACTIONS (5)
  - Venoocclusive liver disease [Unknown]
  - Hyperbilirubinaemia [Unknown]
  - Weight increased [Unknown]
  - Ascites [Unknown]
  - Product use in unapproved indication [Unknown]
